FAERS Safety Report 11375956 (Version 1)
Quarter: 2015Q3

REPORT INFORMATION
  Report Type: Spontaneous
  Country: FR (occurrence: FR)
  Receive Date: 20150813
  Receipt Date: 20150813
  Transmission Date: 20151125
  Serious: Yes (Other)
  Sender: FDA-Public Use
  Company Number: FR-TEVA-584935ISR

PATIENT
  Age: 18 Year
  Sex: Female

DRUGS (2)
  1. MODIODAL [Suspect]
     Active Substance: MODAFINIL
     Indication: HYPERSOMNIA
     Dosage: 100 MILLIGRAM DAILY; IN THE MORNING
     Route: 048
     Dates: start: 20150525, end: 20150619
  2. NEXPLAN [Concomitant]
     Indication: DYSMENORRHOEA
     Route: 058
     Dates: start: 20150117

REACTIONS (2)
  - Menstrual disorder [Recovered/Resolved]
  - Weight decreased [Recovered/Resolved]

NARRATIVE: CASE EVENT DATE: 20150626
